FAERS Safety Report 26204972 (Version 1)
Quarter: 2025Q4

REPORT INFORMATION
  Report Type: Spontaneous
  Country: BR (occurrence: BR)
  Receive Date: 20251227
  Receipt Date: 20251227
  Transmission Date: 20260118
  Serious: Yes (Other)
  Sender: TAKEDA
  Company Number: BR-JNJFOC-20251224487

PATIENT
  Age: 81 Year
  Sex: Male
  Weight: 52 kg

DRUGS (1)
  1. VELCADE [Suspect]
     Active Substance: BORTEZOMIB
     Indication: Product used for unknown indication
     Dosage: UNK

REACTIONS (5)
  - Pneumonia bacterial [Unknown]
  - Pneumonia fungal [Unknown]
  - Decreased immune responsiveness [Unknown]
  - Tooth disorder [Unknown]
  - Sinusitis [Unknown]
